FAERS Safety Report 15425526 (Version 1)
Quarter: 2018Q3

REPORT INFORMATION
  Report Type: Spontaneous
  Country: US (occurrence: US)
  Receive Date: 20180917
  Receipt Date: 20180917
  Transmission Date: 20181010
  Serious: Yes (Hospitalization)
  Sender: FDA-Public Use
  Company Number: None

PATIENT
  Age: 56 Year
  Sex: Male

DRUGS (1)
  1. TRIAMCINOLONE [Suspect]
     Active Substance: TRIAMCINOLONE
     Indication: RESPIRATORY TRACT INFECTION
     Route: 030
     Dates: start: 20180812, end: 20180812

REACTIONS (3)
  - Drug hypersensitivity [None]
  - Food allergy [None]
  - Anaphylactic shock [None]

NARRATIVE: CASE EVENT DATE: 20180812
